FAERS Safety Report 9450016 (Version 2)
Quarter: 2013Q4

REPORT INFORMATION
  Report Type: Spontaneous
  Country: US (occurrence: US)
  Receive Date: 20130809
  Receipt Date: 20131101
  Transmission Date: 20140711
  Serious: Yes (Disabling, Other)
  Sender: FDA-Public Use
  Company Number: US-PFIZER INC-2013230797

PATIENT
  Age: 55 Year
  Sex: Female
  Weight: 67.12 kg

DRUGS (6)
  1. PRISTIQ [Suspect]
     Indication: DEPRESSION
     Dosage: 100 MG, DAILY
     Dates: start: 2008
  2. PRISTIQ [Suspect]
     Indication: ANXIETY
  3. NEURONTIN [Concomitant]
     Indication: NERVOUS SYSTEM DISORDER
     Dosage: 600 MG, 4X/DAY
  4. LISINOPRIL [Concomitant]
     Dosage: 30 MG, DAILY
  5. SYNTHROID [Concomitant]
     Dosage: 50 UG, DAILY
  6. HYDROCHLOROTHIAZIDE [Concomitant]
     Dosage: 25 MG, DAILY

REACTIONS (5)
  - Nerve injury [Unknown]
  - Intervertebral disc disorder [Unknown]
  - Back pain [Unknown]
  - Therapeutic response unexpected [Unknown]
  - Intervertebral disc protrusion [Unknown]
